FAERS Safety Report 7416389-5 (Version None)
Quarter: 2011Q2

REPORT INFORMATION
  Report Type: 
  Country: None (occurrence: None)
  Receive Date: 20110414
  Receipt Date: 20110407
  Transmission Date: 20111010
  Serious: Yes (Hospitalization)
  Sender: FDA-Public Use
  Company Number: US-US-EMD SERONO, INC.-7052697

PATIENT
  Sex: Female

DRUGS (2)
  1. REBIF [Suspect]
     Indication: MULTIPLE SCLEROSIS
     Route: 058
     Dates: start: 20090801, end: 20091001
  2. REBIF [Suspect]
     Route: 058
     Dates: start: 20110328

REACTIONS (5)
  - ARTHRALGIA [None]
  - FEELING HOT [None]
  - BIPOLAR DISORDER [None]
  - BONE PAIN [None]
  - HEADACHE [None]
